FAERS Safety Report 9285532 (Version 1)
Quarter: 2013Q2

REPORT INFORMATION
  Report Type: Spontaneous
  Country: US (occurrence: US)
  Receive Date: 20130513
  Receipt Date: 20130513
  Transmission Date: 20140414
  Serious: No
  Sender: FDA-Public Use
  Company Number: US-PFIZER INC-2013141681

PATIENT
  Sex: Female

DRUGS (1)
  1. TOVIAZ [Suspect]
     Indication: BLADDER DISORDER
     Dosage: UNK
     Dates: end: 201305

REACTIONS (4)
  - Hyperchlorhydria [Unknown]
  - Epigastric discomfort [Unknown]
  - Abdominal distension [Unknown]
  - Urinary incontinence [Unknown]
